FAERS Safety Report 9308885 (Version 1)
Quarter: 2013Q2

REPORT INFORMATION
  Report Type: Spontaneous
  Country: PL (occurrence: PL)
  Receive Date: 20130524
  Receipt Date: 20130524
  Transmission Date: 20140414
  Serious: Yes (Other)
  Sender: FDA-Public Use
  Company Number: PL-ABBOTT-13P-129-1094447-00

PATIENT
  Sex: 0

DRUGS (2)
  1. ADALIMUMAB [Suspect]
     Indication: PRODUCT USED FOR UNKNOWN INDICATION
     Route: 058
  2. ADALIMUMAB [Suspect]

REACTIONS (2)
  - Subarachnoid haemorrhage [Unknown]
  - Intracranial aneurysm [Unknown]
